FAERS Safety Report 6749740-X (Version None)
Quarter: 2010Q2

REPORT INFORMATION
  Report Type: 
  Country: None (occurrence: None)
  Receive Date: 20100601
  Receipt Date: 20100520
  Transmission Date: 20101027
  Serious: Yes (Disabling, Other)
  Sender: FDA-Public Use
  Company Number: FR-AMGEN-QUU413926

PATIENT
  Sex: Male

DRUGS (1)
  1. ENBREL [Suspect]
     Indication: ANKYLOSING SPONDYLITIS
     Dosage: UNKNOWN; TEMPORARILY DISCONTINUED IN OCT-2009, THEN UNKNOWN; REINTRODUCED ON UNSPEC. DATE
     Route: 058

REACTIONS (2)
  - DISEASE PROGRESSION [None]
  - PROSTATE CANCER [None]
